FAERS Safety Report 4467262-6 (Version None)
Quarter: 2004Q4

REPORT INFORMATION
  Report Type: 
  Country: None (occurrence: None)
  Receive Date: 20041006
  Receipt Date: 20040929
  Transmission Date: 20050328
  Serious: Yes (Life-Threatening, Hospitalization)
  Sender: FDA-Public Use
  Company Number: US-BRISTOL-MYERS SQUIBB COMPANY-12716858

PATIENT
  Age: 61 Year
  Sex: Male
  Weight: 84 kg

DRUGS (11)
  1. ERBITUX [Suspect]
     Indication: COLORECTAL CANCER METASTATIC
     Dosage: 43 CC ADMINISTERED
     Route: 042
     Dates: start: 20040927, end: 20040927
  2. ALOXI [Concomitant]
     Indication: PREMEDICATION
     Route: 042
     Dates: start: 20040927, end: 20040927
  3. BENADRYL [Concomitant]
     Indication: PREMEDICATION
     Route: 042
     Dates: start: 20040927, end: 20040927
  4. DECADRON [Concomitant]
     Indication: PREMEDICATION
     Route: 042
     Dates: start: 20040927, end: 20040927
  5. AVASTIN [Concomitant]
  6. CARTIA XT [Concomitant]
  7. CPT-11 [Concomitant]
  8. DIGOXIN [Concomitant]
  9. FLUOROURACIL [Concomitant]
  10. LEUCOVORIN CALCIUM [Concomitant]
  11. PRAVACHOL [Concomitant]

REACTIONS (3)
  - CARDIO-RESPIRATORY ARREST [None]
  - CONVULSION [None]
  - SKIN DISCOLOURATION [None]
